FAERS Safety Report 17922295 (Version 1)
Quarter: 2020Q2

REPORT INFORMATION
  Report Type: Spontaneous
  Country: US (occurrence: US)
  Receive Date: 20200621
  Receipt Date: 20200621
  Transmission Date: 20200714
  Serious: Yes (Life-Threatening)
  Sender: FDA-Public Use
  Company Number: None

PATIENT
  Age: 76 Year
  Sex: Male

DRUGS (1)
  1. GLYCOPYRROLATE (GLYCOPYRROLATE 0.2MG/ML INJ) [Suspect]
     Active Substance: GLYCOPYRROLATE
     Indication: SECRETION DISCHARGE
     Dates: start: 20200410, end: 20200410

REACTIONS (2)
  - Palpitations [None]
  - Ventricular tachycardia [None]

NARRATIVE: CASE EVENT DATE: 20200410
